FAERS Safety Report 4548057-1 (Version None)
Quarter: 2005Q1

REPORT INFORMATION
  Report Type: 
  Country: None (occurrence: None)
  Receive Date: 20050104
  Receipt Date: 20050104
  Transmission Date: 20050727
  Serious: Yes (Other)
  Sender: FDA-Public Use
  Company Number: None

PATIENT
  Age: 45 Year
  Sex: Female
  Weight: 56.246 kg

DRUGS (1)
  1. BEXTRA [Suspect]
     Indication: ARTHRALGIA
     Dosage: 1  TABLET    ORAL
     Route: 048
     Dates: start: 20040209, end: 20040213

REACTIONS (2)
  - ERYTHEMA [None]
  - URTICARIA GENERALISED [None]
